FAERS Safety Report 25442573 (Version 2)
Quarter: 2025Q2

REPORT INFORMATION
  Report Type: Spontaneous
  Country: JP (occurrence: JP)
  Receive Date: 20250617
  Receipt Date: 20250624
  Transmission Date: 20250716
  Serious: Yes (Other)
  Sender: BOEHRINGER INGELHEIM
  Company Number: JP-NBI-2025-BI-075647

PATIENT
  Age: 58 Year
  Sex: Male

DRUGS (1)
  1. GILOTRIF [Suspect]
     Active Substance: AFATINIB
     Indication: Lung adenocarcinoma

REACTIONS (4)
  - Glaucoma [Unknown]
  - Metastases to meninges [Unknown]
  - Iris melanoma [Unknown]
  - Uveitis [Unknown]
